FAERS Safety Report 8107734 (Version 3)
Quarter: 2013Q1

REPORT INFORMATION
  Report Type: Spontaneous
  Country: US (occurrence: US)
  Receive Date: 20110826
  Receipt Date: 20130306
  Transmission Date: 20140127
  Serious: Yes (Death, Hospitalization, Other)
  Sender: FDA-Public Use
  Company Number: US-RANBAXY-2011US-46906

PATIENT
  Sex: 0

DRUGS (1)
  1. ISOTRETINOIN [Suspect]
     Indication: ACNE
     Dosage: UNK
     Route: 048
     Dates: start: 20050104, end: 20050405

REACTIONS (2)
  - Gastrointestinal disorder [Unknown]
  - Colitis [Unknown]
